FAERS Safety Report 4419965-7 (Version None)
Quarter: 2004Q3

REPORT INFORMATION
  Report Type: 
  Country: None (occurrence: None)
  Receive Date: 20040805
  Receipt Date: 20040805
  Transmission Date: 20050211
  Serious: Yes (Death)
  Sender: FDA-Public Use
  Company Number: None

PATIENT
  Age: 38 Year
  Sex: Female
  Weight: 101 kg

DRUGS (9)
  1. PACLITAXEL [Suspect]
     Indication: BREAST CANCER STAGE II
     Dosage: 350 MG 175/M2 Q 2 INTRAVENOUS
     Route: 042
     Dates: start: 20040715, end: 20040729
  2. PREDNISONE [Concomitant]
  3. DEXAMEHTASONE [Concomitant]
  4. TAXOL [Concomitant]
  5. RANITIDINE [Concomitant]
  6. DIPHENHYDRAMINE [Concomitant]
  7. CARVEDILOL [Concomitant]
  8. GUAIFENESIN [Concomitant]
  9. SIMETHICONE [Concomitant]

REACTIONS (3)
  - ANAPHYLACTIC REACTION [None]
  - CARDIO-RESPIRATORY ARREST [None]
  - INFUSION RELATED REACTION [None]
